FAERS Safety Report 14241519 (Version 1)
Quarter: 2017Q4

REPORT INFORMATION
  Report Type: Spontaneous
  Country: US (occurrence: US)
  Receive Date: 20171201
  Receipt Date: 20171201
  Transmission Date: 20180321
  Serious: No
  Sender: FDA-Public Use
  Company Number: US-ENDO PHARMACEUTICALS INC-2017-000711

PATIENT
  Sex: Male

DRUGS (1)
  1. ALPRAZOLAM ER TABLETS 2MG [Suspect]
     Active Substance: ALPRAZOLAM
     Indication: PRODUCT USED FOR UNKNOWN INDICATION
     Dosage: UNK UNK, UNKNOWN
     Route: 065

REACTIONS (3)
  - Product solubility abnormal [Unknown]
  - Product quality issue [Unknown]
  - Emotional disorder [Unknown]
